FAERS Safety Report 5358376-7 (Version None)
Quarter: 2007Q2

REPORT INFORMATION
  Report Type: 
  Country: None (occurrence: None)
  Receive Date: 20070530
  Receipt Date: 20061013
  Transmission Date: 20071010
  Serious: Yes (Hospitalization)
  Sender: FDA-Public Use
  Company Number: US200512002849

PATIENT
  Age: 40 Year
  Sex: Female
  Weight: 59 kg

DRUGS (5)
  1. ZYPREXA [Suspect]
     Indication: INSOMNIA
     Dosage: 2.5 MG
     Dates: start: 20021201
  2. SEROQUEL [Concomitant]
  3. ZIPRASIDONE HCL [Concomitant]
  4. VENLAFAXINE HCL [Concomitant]
  5. METOPROLOL TARTRATE [Concomitant]

REACTIONS (2)
  - HYPERTENSION [None]
  - PANCREATITIS [None]
